FAERS Safety Report 18493523 (Version 2)
Quarter: 2020Q4

REPORT INFORMATION
  Report Type: Spontaneous
  Country: US (occurrence: US)
  Receive Date: 20201112
  Receipt Date: 20201125
  Transmission Date: 20210114
  Serious: Yes (Other)
  Sender: FDA-Public Use
  Company Number: US-TAKEDA-2020TUS044468

PATIENT
  Age: 58 Year
  Sex: Male
  Weight: 76.19 kg

DRUGS (24)
  1. CUVITRU [Suspect]
     Active Substance: HUMAN IMMUNOGLOBULIN G
     Indication: IMMUNODEFICIENCY COMMON VARIABLE
     Dosage: 16 GRAM, Q2WEEKS
     Route: 058
     Dates: start: 20181114
  2. CUVITRU [Suspect]
     Active Substance: HUMAN IMMUNOGLOBULIN G
     Indication: SELECTIVE IGG SUBCLASS DEFICIENCY
  3. LIDOCAINE. [Concomitant]
     Active Substance: LIDOCAINE
  4. PAROXETINE. [Concomitant]
     Active Substance: PAROXETINE
  5. ZANAFLEX [Concomitant]
     Active Substance: TIZANIDINE HYDROCHLORIDE
  6. ACETAMINOPHEN. [Concomitant]
     Active Substance: ACETAMINOPHEN
  7. NEXIUM I.V. [Concomitant]
     Active Substance: ESOMEPRAZOLE SODIUM
  8. TIZANIDINE. [Concomitant]
     Active Substance: TIZANIDINE
  9. SINGULAIR [Concomitant]
     Active Substance: MONTELUKAST SODIUM
  10. BUTALBITAL, ACETAMINOPHEN, AND CAFFEINE [Concomitant]
     Active Substance: ACETAMINOPHEN\BUTALBITAL\CAFFEINE
  11. MULTIVITAMINS [VITAMINS NOS] [Concomitant]
     Active Substance: VITAMINS
  12. PROMETHAZINE [Concomitant]
     Active Substance: PROMETHAZINE HYDROCHLORIDE
  13. HIZENTRA [Concomitant]
     Active Substance: HUMAN IMMUNOGLOBULIN G
  14. PAXIL [Concomitant]
     Active Substance: PAROXETINE HYDROCHLORIDE
  15. MONTELUKAST SODIUM. [Concomitant]
     Active Substance: MONTELUKAST SODIUM
  16. LMX4 [Concomitant]
     Active Substance: LIDOCAINE
  17. LORATADINE. [Concomitant]
     Active Substance: LORATADINE
  18. DIPHENHYDRAMINE. [Concomitant]
     Active Substance: DIPHENHYDRAMINE
  19. EPINEPHRINE. [Concomitant]
     Active Substance: EPINEPHRINE
  20. EPIPEN [Concomitant]
     Active Substance: EPINEPHRINE
  21. XANAX [Concomitant]
     Active Substance: ALPRAZOLAM
  22. TRAMADOL. [Concomitant]
     Active Substance: TRAMADOL
  23. CYPROHEPTADINE. [Concomitant]
     Active Substance: CYPROHEPTADINE
  24. CARAFATE [Concomitant]
     Active Substance: SUCRALFATE

REACTIONS (4)
  - Infusion site swelling [Unknown]
  - Kidney infection [Unknown]
  - Gingivitis [Unknown]
  - Infusion site erythema [Unknown]

NARRATIVE: CASE EVENT DATE: 20201001
